FAERS Safety Report 8924946 (Version 1)
Quarter: 2012Q4

REPORT INFORMATION
  Report Type: 
  Country: US (occurrence: US)
  Receive Date: 20121126
  Receipt Date: 20121126
  Transmission Date: 20130627
  Serious: Yes (Other)
  Sender: FDA-Public Use
  Company Number: US-BAYER-2012-122530

PATIENT
  Age: 28 Year
  Sex: Female

DRUGS (14)
  1. YAZ [Suspect]
     Indication: CONTRACEPTION
  2. MECLIZINE [Concomitant]
     Indication: DIZZINESS
     Dosage: UNK
     Route: 048
  3. TORADOL [Concomitant]
     Indication: SINUS INFECTION
     Dosage: 30 mg, UNK
     Route: 030
  4. AMOXICILLIN [Concomitant]
     Dosage: 500 mg, UNK
     Route: 048
  5. AMITRIPTYLINE [Concomitant]
     Dosage: 25 mg, UNK
     Route: 048
  6. TOPIRAMATE [Concomitant]
     Dosage: 25 mg, UNK
     Route: 048
  7. CYCLOBENZAPRINE [Concomitant]
     Dosage: 10 mg, UNK
     Route: 048
  8. SUDOGEST [Concomitant]
     Dosage: 30 mg, UNK
     Route: 048
  9. FLEXERIL [Concomitant]
     Dosage: 10 mg, UNK
     Route: 048
  10. PROMETHAZINE [Concomitant]
     Dosage: 25 mg, UNK
     Route: 048
  11. HYDROCODONE W/ACETAMINOPHEN [Concomitant]
     Dosage: 5-325 mg
     Route: 048
  12. PHENERGAN [Concomitant]
     Indication: GI UPSET
     Dosage: 25 mg, UNK
  13. VICODIN [Concomitant]
     Dosage: 5/325
  14. NAPROXEN [Concomitant]
     Route: 048

REACTIONS (1)
  - Deep vein thrombosis [None]
